FAERS Safety Report 8376560-5 (Version None)
Quarter: 2012Q1

REPORT INFORMATION
  Report Type: 
  Country: None (occurrence: None)
  Receive Date: 20120323
  Receipt Date: 20110208
  Transmission Date: 20120608
  Serious: Yes (Hospitalization)
  Sender: FDA-Public Use
  Company Number: 163-21880-10121730

PATIENT
  Age: 84 Year
  Sex: Female

DRUGS (13)
  1. COLACE (DOCUSATE SODIUM) [Concomitant]
  2. ACETAMINOPHEN [Concomitant]
  3. REVLIMID [Suspect]
     Indication: MYELODYSPLASTIC SYNDROME
     Dosage: 10 MG, 1 IN 1 D, PO
     Route: 048
     Dates: start: 20100922, end: 20101228
  4. LEVOTHYROXINE SODIUM [Concomitant]
  5. VITAMIN TAB [Concomitant]
  6. BACTRIM [Concomitant]
  7. OMEPRAZOLE [Concomitant]
  8. CIPRO [Concomitant]
  9. CELEBREX [Concomitant]
  10. RESTORIL [Concomitant]
  11. CRESTOR [Concomitant]
  12. ENALAPRIL MALEATE [Concomitant]
  13. PROTONIX [Concomitant]

REACTIONS (6)
  - COLON CANCER [None]
  - DISEASE PROGRESSION [None]
  - DYSPEPSIA [None]
  - DYSPNOEA [None]
  - RASH [None]
  - DECREASED APPETITE [None]
